FAERS Safety Report 21767521 (Version 1)
Quarter: 2022Q4

REPORT INFORMATION
  Report Type: Report from Study
  Country: US (occurrence: US)
  Receive Date: 20221222
  Receipt Date: 20221222
  Transmission Date: 20230113
  Serious: Yes (Hospitalization, Other)
  Sender: FDA-Public Use
  Company Number: US-IMMUNOCORE, LTD-2022-IMC-001247

PATIENT
  Sex: Female

DRUGS (1)
  1. KIMMTRAK [Suspect]
     Active Substance: TEBENTAFUSP-TEBN
     Indication: Uveal melanoma
     Dosage: FIRST TREATMENT

REACTIONS (4)
  - Sinusitis [Recovered/Resolved]
  - Eye infection [Not Recovered/Not Resolved]
  - Neoplasm progression [Unknown]
  - Product dose omission issue [Unknown]
